FAERS Safety Report 16047406 (Version 2)
Quarter: 2019Q3

REPORT INFORMATION
  Report Type: Spontaneous
  Country: US (occurrence: US)
  Receive Date: 20190307
  Receipt Date: 20190822
  Transmission Date: 20191004
  Serious: No
  Sender: FDA-Public Use
  Company Number: US-BIOGEN-2019BI00704442

PATIENT
  Sex: Female

DRUGS (1)
  1. TYSABRI [Suspect]
     Active Substance: NATALIZUMAB
     Indication: MULTIPLE SCLEROSIS
     Route: 065
     Dates: start: 20130214

REACTIONS (4)
  - Sensory disturbance [Not Recovered/Not Resolved]
  - Back disorder [Not Recovered/Not Resolved]
  - Paraesthesia [Unknown]
  - Feeling abnormal [Not Recovered/Not Resolved]
